FAERS Safety Report 23967848 (Version 1)
Quarter: 2024Q2

REPORT INFORMATION
  Report Type: Spontaneous
  Country: US (occurrence: US)
  Receive Date: 20240612
  Receipt Date: 20240612
  Transmission Date: 20240716
  Serious: No
  Sender: FDA-Public Use
  Company Number: US-RIGEL Pharmaceuticals, INC-2024FOS000067

PATIENT
  Sex: Male

DRUGS (2)
  1. TAVALISSE [Suspect]
     Active Substance: FOSTAMATINIB
     Indication: Leukopenia
     Dosage: 100 MG, BID
     Route: 048
     Dates: start: 20220924
  2. ADDERALL [Concomitant]
     Active Substance: AMPHETAMINE ASPARTATE\AMPHETAMINE SULFATE\DEXTROAMPHETAMINE SACCHARATE\DEXTROAMPHETAMINE SULFATE
     Indication: Product used for unknown indication
     Dosage: UNK

REACTIONS (2)
  - Off label use [Unknown]
  - Product dose omission issue [Unknown]
